FAERS Safety Report 6699542-8 (Version None)
Quarter: 2010Q2

REPORT INFORMATION
  Report Type: 
  Country: None (occurrence: None)
  Receive Date: 20100427
  Receipt Date: 20100427
  Transmission Date: 20101027
  Serious: Yes (Life-Threatening, Hospitalization)
  Sender: FDA-Public Use
  Company Number: None

PATIENT
  Age: 48 Year
  Sex: Male
  Weight: 88.5 kg

DRUGS (6)
  1. PHENYTOIN EXTENDED RELEASE CAP 100MG PFIZER NDC#00071-0369-40 [Suspect]
     Indication: CONVULSION
     Dosage: 200MG TWICE DAILY PO
     Route: 048
     Dates: start: 20100401, end: 20100404
  2. OXCARBAZEPINE [Concomitant]
  3. LACOSAMIDE [Concomitant]
  4. LAMOTRIGINE [Concomitant]
  5. OLANZAPINE [Concomitant]
  6. TOPIRAMATE [Concomitant]

REACTIONS (1)
  - STEVENS-JOHNSON SYNDROME [None]
